FAERS Safety Report 9111637 (Version 1)
Quarter: 2013Q1

REPORT INFORMATION
  Report Type: Spontaneous
  Country: US (occurrence: US)
  Receive Date: 20130219
  Receipt Date: 20130219
  Transmission Date: 20140127
  Serious: No
  Sender: FDA-Public Use
  Company Number: US-BRISTOL-MYERS SQUIBB COMPANY-16553091

PATIENT
  Age: 32 Year
  Sex: Female
  Weight: 93.87 kg

DRUGS (12)
  1. ORENCIA [Suspect]
     Route: 058
     Dates: start: 20120325
  2. LYRICA [Concomitant]
  3. PLAQUENIL [Concomitant]
  4. METFORMIN [Concomitant]
  5. LISINOPRIL [Concomitant]
  6. PREDNISONE [Concomitant]
  7. SERTRALINE [Concomitant]
  8. BUSPIRONE [Concomitant]
  9. NEXIUM [Concomitant]
  10. TRAMADOL [Concomitant]
  11. SINGULAIR [Concomitant]
  12. AUGMENTIN [Concomitant]

REACTIONS (5)
  - Dyspepsia [Unknown]
  - Nausea [Unknown]
  - Nasopharyngitis [Unknown]
  - Fatigue [Unknown]
  - Gastrointestinal infection [Unknown]
